FAERS Safety Report 4356503-1 (Version None)
Quarter: 2004Q2

REPORT INFORMATION
  Report Type: 
  Country: None (occurrence: None)
  Receive Date: 20040507
  Receipt Date: 20040430
  Transmission Date: 20050107
  Serious: Yes (Hospitalization, Other)
  Sender: FDA-Public Use
  Company Number: FRWYE456210DEC03

PATIENT
  Age: 52 Year
  Sex: Female

DRUGS (9)
  1. TAZOCILLINE (PIPERACILLIN/TAZOBACTAM, INJECTION) [Suspect]
     Indication: SEPTIC SHOCK
     Dosage: 4 G 3X PER 1 DAY INTRAVENOUS
     Route: 042
     Dates: start: 20031105, end: 20031115
  2. CIFLOX (CIPROFLOXACIN, , 0) [Suspect]
     Indication: SEPTIC SHOCK
     Dosage: 800 MG 1X PER 1 DAY INTRAVENOUS
     Route: 042
     Dates: start: 20031105, end: 20031115
  3. FLUCONAZOLE [Suspect]
     Indication: SEPTIC SHOCK
     Dosage: 200 MG 1X PER 1 DAY ORAL
     Route: 048
     Dates: start: 20031105, end: 20031115
  4. VANCOMYCIN [Suspect]
     Indication: SEPTIC SHOCK
     Dates: start: 20031105, end: 20031115
  5. LASIX [Concomitant]
  6. OMEPRAZOLE [Concomitant]
  7. RAMIPRIL [Concomitant]
  8. CORDARONE [Concomitant]
  9. DOBUTREX [Concomitant]

REACTIONS (8)
  - ATRIAL FIBRILLATION [None]
  - CARDIOGENIC SHOCK [None]
  - CONDITION AGGRAVATED [None]
  - DISEASE RECURRENCE [None]
  - HYPOKALAEMIA [None]
  - METABOLIC ALKALOSIS [None]
  - RENAL TUBULAR DISORDER [None]
  - URINE POTASSIUM INCREASED [None]
